FAERS Safety Report 13064695 (Version 1)
Quarter: 2016Q4

REPORT INFORMATION
  Report Type: Spontaneous
  Country: US (occurrence: US)
  Receive Date: 20161227
  Receipt Date: 20161227
  Transmission Date: 20170207
  Serious: Yes (Death)
  Sender: FDA-Public Use
  Company Number: US-ASTELLAS-2016US043963

PATIENT
  Age: 91 Year
  Sex: Male

DRUGS (1)
  1. XTANDI [Suspect]
     Active Substance: ENZALUTAMIDE
     Indication: PROSTATE CANCER METASTATIC
     Route: 048
     Dates: start: 20160903

REACTIONS (11)
  - Fatigue [Unknown]
  - Gait disturbance [Unknown]
  - Pain in extremity [Unknown]
  - Asthenia [Unknown]
  - Dysuria [Unknown]
  - Peripheral swelling [Unknown]
  - Weight increased [Unknown]
  - Limb discomfort [Unknown]
  - Arthralgia [Unknown]
  - Decreased appetite [Unknown]
  - Death [Fatal]

NARRATIVE: CASE EVENT DATE: 20161103
